FAERS Safety Report 7477514-3 (Version None)
Quarter: 2011Q2

REPORT INFORMATION
  Report Type: 
  Country: None (occurrence: None)
  Receive Date: 20110513
  Receipt Date: 20110510
  Transmission Date: 20111010
  Serious: Yes (Hospitalization)
  Sender: FDA-Public Use
  Company Number: US-CEPHALON-2011002099

PATIENT
  Sex: Male
  Weight: 102 kg

DRUGS (7)
  1. CYMBALTA [Concomitant]
     Dates: start: 20080101
  2. LOVAZA [Concomitant]
     Dates: start: 20090101
  3. CADUET [Concomitant]
     Dates: start: 20060101
  4. BENICAR [Concomitant]
     Dates: start: 20060101
  5. HYDROCODONE BITARTRATE [Suspect]
     Indication: PAIN
     Route: 048
     Dates: start: 20110412, end: 20110425
  6. ESOMEPRAZOLE [Concomitant]
     Dates: start: 20060101
  7. NIASPAN [Concomitant]
     Dates: start: 20090101

REACTIONS (2)
  - TREMOR [None]
  - PARAESTHESIA [None]
